FAERS Safety Report 5146189-0 (Version None)
Quarter: 2006Q4

REPORT INFORMATION
  Report Type: 
  Country: None (occurrence: None)
  Receive Date: 20061108
  Receipt Date: 20061031
  Transmission Date: 20070319
  Serious: Yes (Death, Hospitalization)
  Sender: FDA-Public Use
  Company Number: US-ROCHE-469649

PATIENT
  Age: 33 Year
  Sex: Male
  Weight: 142.9 kg

DRUGS (2)
  1. KLONOPIN [Suspect]
     Indication: ANXIETY
     Route: 065
  2. RISPERIDONE [Suspect]
     Indication: SCHIZOPHRENIA
     Dosage: FORM REPORTED AS MICROSPHERES.
     Route: 030
     Dates: start: 20050615

REACTIONS (3)
  - CARDIAC VALVE DISEASE [None]
  - HAEMORRHAGE [None]
  - HYPERTHERMIA [None]
